FAERS Safety Report 4916659-6 (Version None)
Quarter: 2006Q1

REPORT INFORMATION
  Report Type: 
  Country: None (occurrence: None)
  Receive Date: 20060216
  Receipt Date: 20060216
  Transmission Date: 20060701
  Serious: Yes (Other)
  Sender: FDA-Public Use
  Company Number: None

PATIENT
  Age: 55 Year
  Sex: Male
  Weight: 95.5 kg

DRUGS (13)
  1. SIMVASTATIN [Suspect]
  2. AMOXICILLIN [Concomitant]
  3. BACLOFEN [Concomitant]
  4. BISACODYL [Concomitant]
  5. GATIFLOXACIN [Concomitant]
  6. METHENAMINE MANDELATE [Concomitant]
  7. METOPROLOL TARTRATE [Concomitant]
  8. COUMADIN [Concomitant]
  9. SODIUM FLUORIDE [Concomitant]
  10. CHLORHEXIDINE GLUCONATE [Concomitant]
  11. CLONAZEPAM [Concomitant]
  12. FLUVASTATIN NA [Concomitant]
  13. CITALOPRAM HYDROBROMIDE [Concomitant]

REACTIONS (1)
  - NONSPECIFIC REACTION [None]
